FAERS Safety Report 12157781 (Version 1)
Quarter: 2016Q1

REPORT INFORMATION
  Report Type: Spontaneous
  Country: US (occurrence: US)
  Receive Date: 20160308
  Receipt Date: 20160308
  Transmission Date: 20160526
  Serious: Yes (Other)
  Sender: FDA-Public Use
  Company Number: US-JNJFOC-20140906187

PATIENT
  Age: 68 Year
  Sex: Female
  Weight: 109 kg

DRUGS (34)
  1. BENADRYL [Concomitant]
     Active Substance: DIPHENHYDRAMINE HYDROCHLORIDE
     Indication: SEASONAL ALLERGY
     Dosage: EVERY SIX HOURS AS NEEDED
     Route: 048
  2. FLAXSEED [Concomitant]
     Active Substance: FLAX SEED
     Indication: SUPPLEMENTATION THERAPY
     Route: 048
  3. VITAMIN D3 [Concomitant]
     Active Substance: CHOLECALCIFEROL
     Indication: SUPPLEMENTATION THERAPY
     Route: 048
  4. ANASTROZOLE. [Concomitant]
     Active Substance: ANASTROZOLE
     Route: 048
  5. PREDNISONE. [Concomitant]
     Active Substance: PREDNISONE
  6. DOCUSATE [Concomitant]
     Active Substance: DOCUSATE
     Route: 048
  7. IMBRUVICA [Suspect]
     Active Substance: IBRUTINIB
     Indication: CHRONIC LYMPHOCYTIC LEUKAEMIA
     Route: 048
     Dates: start: 20140927
  8. LUTEIN [Concomitant]
     Active Substance: LUTEIN
     Indication: SUPPLEMENTATION THERAPY
     Route: 048
  9. COQ10 [Concomitant]
     Active Substance: UBIDECARENONE
     Indication: MUSCLE SPASMS
     Route: 048
  10. PREDNISONE. [Concomitant]
     Active Substance: PREDNISONE
  11. CYCLOSPORIN [Concomitant]
     Active Substance: CYCLOSPORINE
  12. ACYCLOVIR. [Concomitant]
     Active Substance: ACYCLOVIR
     Indication: ANTIVIRAL PROPHYLAXIS
     Route: 048
     Dates: start: 2010
  13. LOTREL [Concomitant]
     Active Substance: AMLODIPINE BESYLATE\BENAZEPRIL HYDROCHLORIDE
     Indication: HYPERTENSION
     Dosage: 5/20 MG
     Route: 048
  14. FOLIC ACID. [Concomitant]
     Active Substance: FOLIC ACID
     Indication: SUPPLEMENTATION THERAPY
     Dosage: 400 MCG
     Route: 048
  15. PREDNISONE. [Concomitant]
     Active Substance: PREDNISONE
  16. FUROSEMIDE. [Concomitant]
     Active Substance: FUROSEMIDE
     Indication: FLUID RETENTION
     Route: 048
     Dates: start: 2003
  17. RESTASIS [Concomitant]
     Active Substance: CYCLOSPORINE
     Indication: DRY EYE
     Dosage: EACH EYE DAILY
     Route: 047
  18. BENADRYL [Concomitant]
     Active Substance: DIPHENHYDRAMINE HYDROCHLORIDE
     Indication: SINUS DISORDER
     Dosage: EVERY SIX HOURS AS NEEDED
     Route: 048
  19. FISH OIL [Concomitant]
     Active Substance: FISH OIL
     Indication: SUPPLEMENTATION THERAPY
     Route: 048
  20. LIPITOR [Concomitant]
     Active Substance: ATORVASTATIN CALCIUM
  21. BACTRIM [Concomitant]
     Active Substance: SULFAMETHOXAZOLE\TRIMETHOPRIM
     Indication: ANTIBIOTIC PROPHYLAXIS
     Dosage: 800/160 MG TWICE DAILY ON MONDAYS AND FRIDAYS ONLY
     Route: 048
     Dates: start: 2010
  22. POTASSIUM [Concomitant]
     Active Substance: POTASSIUM
     Indication: ELECTROLYTE SUBSTITUTION THERAPY
     Route: 048
     Dates: start: 2003
  23. PREDNISONE. [Concomitant]
     Active Substance: PREDNISONE
  24. SENNA [Concomitant]
     Active Substance: SENNA LEAF\SENNOSIDES\SENNOSIDES A AND B
     Route: 048
  25. BENADRYL [Concomitant]
     Active Substance: DIPHENHYDRAMINE HYDROCHLORIDE
     Indication: SINUS DISORDER
     Route: 048
  26. BENADRYL [Concomitant]
     Active Substance: DIPHENHYDRAMINE HYDROCHLORIDE
     Indication: SEASONAL ALLERGY
     Route: 048
  27. GLUCOSAMINE + CHONDROITIN SULFATE [Concomitant]
     Indication: SUPPLEMENTATION THERAPY
     Dosage: DOSE 1500/200 MG DAILY
     Route: 048
  28. VITAMIN B12 [Concomitant]
     Active Substance: CYANOCOBALAMIN
     Indication: SUPPLEMENTATION THERAPY
     Route: 048
  29. ASPIRIN. [Concomitant]
     Active Substance: ASPIRIN
  30. POLYETHYLENE GLYCOL [Concomitant]
     Active Substance: POLYETHYLENE GLYCOLS
     Route: 048
  31. IMBRUVICA [Suspect]
     Active Substance: IBRUTINIB
     Indication: CHRONIC LYMPHOCYTIC LEUKAEMIA
     Route: 048
     Dates: start: 20131209, end: 20141008
  32. GABAPENTIN. [Concomitant]
     Active Substance: GABAPENTIN
     Indication: CARPAL TUNNEL SYNDROME
     Route: 048
     Dates: start: 201402
  33. SIMVASTATIN. [Concomitant]
     Active Substance: SIMVASTATIN
     Indication: BLOOD CHOLESTEROL INCREASED
     Route: 048
  34. VITAMIN B6 [Concomitant]
     Active Substance: PYRIDOXINE HYDROCHLORIDE
     Indication: SUPPLEMENTATION THERAPY
     Route: 048

REACTIONS (22)
  - Chondrocalcinosis pyrophosphate [Recovering/Resolving]
  - Dizziness [Unknown]
  - Bursitis [Recovering/Resolving]
  - Sinus congestion [Not Recovered/Not Resolved]
  - Carpal tunnel syndrome [Recovering/Resolving]
  - Traumatic haemorrhage [Recovered/Resolved]
  - Rectal polyp [Unknown]
  - Skin lesion [Not Recovered/Not Resolved]
  - Onychomycosis [Recovering/Resolving]
  - Fall [Recovered/Resolved]
  - Photopsia [Recovered/Resolved]
  - Contusion [Recovering/Resolving]
  - Abdominal distension [Unknown]
  - Bladder trabeculation [Unknown]
  - Rash [Recovering/Resolving]
  - Skin abrasion [Unknown]
  - Fungal skin infection [Recovering/Resolving]
  - Nocturia [Unknown]
  - Basal cell carcinoma [Recovered/Resolved]
  - Fatigue [Not Recovered/Not Resolved]
  - Arteriosclerosis coronary artery [Unknown]
  - Tunnel vision [Unknown]

NARRATIVE: CASE EVENT DATE: 2014
